FAERS Safety Report 8546092-X (Version None)
Quarter: 2012Q3

REPORT INFORMATION
  Report Type: 
  Country: None (occurrence: None)
  Receive Date: 20120727
  Receipt Date: 20111207
  Transmission Date: 20120928
  Serious: No
  Sender: FDA-Public Use
  Company Number: US-ASTRAZENECA-2011SE74441

PATIENT
  Age: 25 Year
  Sex: Male
  Weight: 63 kg

DRUGS (12)
  1. SEROQUEL [Suspect]
     Indication: AFFECTIVE DISORDER
     Route: 048
     Dates: start: 20111101
  2. EFFEXOR XR [Concomitant]
     Indication: ASTHENIA
     Dates: start: 20111001
  3. SEROQUEL [Suspect]
     Route: 048
  4. EFFEXOR XR [Concomitant]
     Indication: DEPRESSION
     Dates: start: 20111001
  5. KLONOPIN [Concomitant]
     Indication: PANIC ATTACK
     Dates: start: 20111001
  6. SEROQUEL [Suspect]
     Route: 048
  7. SEROQUEL [Suspect]
     Indication: POST-TRAUMATIC STRESS DISORDER
     Route: 048
     Dates: start: 20111101
  8. SEROQUEL [Suspect]
     Route: 048
  9. SEROQUEL [Suspect]
     Route: 048
  10. SEROQUEL [Suspect]
     Route: 048
  11. SEROQUEL [Suspect]
     Route: 048
  12. KLONOPIN [Concomitant]
     Indication: ANXIETY DISORDER
     Dates: start: 20111001

REACTIONS (7)
  - SEDATION [None]
  - AGITATION [None]
  - FORMICATION [None]
  - ANXIETY [None]
  - DRUG PRESCRIBING ERROR [None]
  - SLEEP DISORDER [None]
  - IRRITABILITY [None]
